FAERS Safety Report 6552023-4 (Version None)
Quarter: 2010Q1

REPORT INFORMATION
  Report Type: 
  Country: None (occurrence: None)
  Receive Date: 20100120
  Receipt Date: 20100105
  Transmission Date: 20100710
  Serious: Yes (Other)
  Sender: FDA-Public Use
  Company Number: 230107J10USA

PATIENT
  Age: 52 Year
  Sex: Female
  Weight: 50 kg

DRUGS (4)
  1. REBIF [Suspect]
     Indication: MULTIPLE SCLEROSIS
     Dosage: 44 MCG, 3 IN 1 WEEKS
  2. PROVIGIL [Concomitant]
  3. LUNESTA [Suspect]
  4. AMITRIPTYLINE HCL [Concomitant]

REACTIONS (9)
  - ARTHRALGIA [None]
  - CHONDROPATHY [None]
  - GAIT DISTURBANCE [None]
  - HERNIA [None]
  - JOINT LOCK [None]
  - JOINT SWELLING [None]
  - MENISCUS LESION [None]
  - PATELLA FRACTURE [None]
  - TIBIA FRACTURE [None]
